FAERS Safety Report 11539133 (Version 2)
Quarter: 2015Q4

REPORT INFORMATION
  Report Type: Report from Study
  Country: US (occurrence: US)
  Receive Date: 20150923
  Receipt Date: 20151015
  Transmission Date: 20160304
  Serious: No
  Sender: FDA-Public Use
  Company Number: US-AMGEN-USASL2015097492

PATIENT
  Age: 33 Year
  Sex: Female

DRUGS (2)
  1. ENBREL [Suspect]
     Active Substance: ETANERCEPT
     Indication: ANKYLOSING SPONDYLITIS
     Dosage: UNK
     Route: 065
     Dates: start: 20150501, end: 2015
  2. ENBREL [Suspect]
     Active Substance: ETANERCEPT
     Dosage: 50 MG, EVERY 5 DAYS
     Route: 065
     Dates: start: 2015

REACTIONS (6)
  - Haemorrhoids [Unknown]
  - Vaginal discharge [Unknown]
  - Hair colour changes [Unknown]
  - Inflammation [Unknown]
  - Back pain [Unknown]
  - Alopecia [Unknown]

NARRATIVE: CASE EVENT DATE: 2015
